FAERS Safety Report 6588370-X (Version None)
Quarter: 2010Q1

REPORT INFORMATION
  Report Type: 
  Country: None (occurrence: None)
  Receive Date: 20100212
  Receipt Date: 20100125
  Transmission Date: 20100710
  Serious: Yes (Hospitalization)
  Sender: FDA-Public Use
  Company Number: 1000011636

PATIENT
  Age: 53 Year
  Sex: Female

DRUGS (4)
  1. ESCITALOPRAM [Suspect]
     Indication: DEPRESSION
     Dosage: 10 MG (10 MG, 1 IN 1 D), ORAL
     Route: 048
     Dates: start: 20091015, end: 20091208
  2. ESCITALOPRAM [Suspect]
     Indication: DEPRESSION
     Dosage: 20 MG (10 MG, 2 IN 1 D), ORAL
     Route: 048
     Dates: start: 20091209, end: 20091212
  3. IMOVANE [Suspect]
     Indication: INSOMNIA
     Dosage: 7.5 MG (7.5 MG, 1 IN 1 D), ORAL
     Route: 048
     Dates: start: 20091209, end: 20091212
  4. XANAX [Suspect]
     Indication: ANXIETY
     Dosage: 0.5 MG (0.25 MG, 2 IN 1 D), ORAL
     Route: 048
     Dates: start: 20091015, end: 20091212

REACTIONS (4)
  - FACE OEDEMA [None]
  - SKIN EXFOLIATION [None]
  - URTICARIA [None]
  - XERODERMA [None]
